FAERS Safety Report 14076564 (Version 1)
Quarter: 2017Q4

REPORT INFORMATION
  Report Type: Spontaneous
  Country: AU (occurrence: AU)
  Receive Date: 20171011
  Receipt Date: 20171011
  Transmission Date: 20180321
  Serious: Yes (Other)
  Sender: FDA-Public Use
  Company Number: AU-INDIVIOR LIMITED-INDV-105216-2017

PATIENT
  Sex: Female

DRUGS (3)
  1. SUBUTEX [Suspect]
     Active Substance: BUPRENORPHINE HYDROCHLORIDE
     Indication: PRODUCT USED FOR UNKNOWN INDICATION
     Dosage: UNK
     Route: 065
  2. VALIUM [Concomitant]
     Active Substance: DIAZEPAM
     Indication: PRODUCT USED FOR UNKNOWN INDICATION
     Dosage: UNK
     Route: 065
  3. ZYPREXA [Suspect]
     Active Substance: OLANZAPINE
     Indication: PRODUCT USED FOR UNKNOWN INDICATION
     Dosage: UNK
     Route: 065

REACTIONS (9)
  - Renal impairment [Unknown]
  - Cardiac failure [Unknown]
  - Joint stiffness [Unknown]
  - Insomnia [Unknown]
  - Musculoskeletal stiffness [Unknown]
  - Skin discolouration [Unknown]
  - Pollakiuria [Unknown]
  - Menstruation irregular [Unknown]
  - Muscle twitching [Unknown]
